FAERS Safety Report 23041771 (Version 1)
Quarter: 2023Q4

REPORT INFORMATION
  Report Type: Spontaneous
  Country: US (occurrence: US)
  Receive Date: 20231007
  Receipt Date: 20231007
  Transmission Date: 20240109
  Serious: Yes (Hospitalization)
  Sender: FDA-Public Use
  Company Number: US-Fresenius Medical Care Renal Therapies Group-FMC-2310-001070

PATIENT
  Age: 55 Year
  Sex: Male
  Weight: 112 kg

DRUGS (3)
  1. DELFLEX WITH DEXTROSE 1.5% LOW MAGNESIUM LOW CALCIUM [Suspect]
     Active Substance: CALCIUM CHLORIDE\DEXTROSE\MAGNESIUM CHLORIDE\SODIUM CHLORIDE\SODIUM LACTATE
     Indication: End stage renal disease
     Dosage: 7 DAYS PER WEEK, CA 2.5 (MEQ/L), MG 0.5 (MEQ/L), DEXTROSE, NUMBER OF EXCHANGES WAS 2, FILL VOLUME 2,
     Route: 033
     Dates: start: 20210726
  2. DELFLEX WITH DEXTROSE 2.5% LOW MAGNESIUM LOW CALCIUM [Suspect]
     Active Substance: CALCIUM CHLORIDE\DEXTROSE\MAGNESIUM CHLORIDE\SODIUM CHLORIDE\SODIUM LACTATE
     Indication: End stage renal disease
     Dosage: 7 DAYS PER WEEK, CA 2.5 (MEQ/L), MG 0.5 (MEQ/L), DEXTROSE, NUMBER OF EXCHANGES WAS 2, FILL VOLUME 2,
     Route: 033
  3. DELFLEX WITH DEXTROSE 4.25% LOW MAGNESIUM LOW CALCIUM [Suspect]
     Active Substance: CALCIUM CHLORIDE\DEXTROSE\MAGNESIUM CHLORIDE\SODIUM CHLORIDE\SODIUM LACTATE
     Indication: End stage renal disease
     Dosage: 7 DAYS PER WEEK, CA 2.5 (MEQ/L), MG 0.5 (MEQ/L), DEXTROSE, NUMBER OF EXCHANGES WAS 2, FILL VOLUME 2,
     Route: 033

REACTIONS (3)
  - Inguinal hernia [Unknown]
  - Device malfunction [Unknown]
  - Umbilical hernia repair [Unknown]
